FAERS Safety Report 10186109 (Version 2)
Quarter: 2014Q2

REPORT INFORMATION
  Report Type: Report from Study
  Country: CH (occurrence: CH)
  Receive Date: 20140521
  Receipt Date: 20140521
  Transmission Date: 20141212
  Serious: Yes (Death, Life-Threatening)
  Sender: FDA-Public Use
  Company Number: CH-TEVA-373937USA

PATIENT
  Age: 67 Year
  Sex: Male

DRUGS (5)
  1. RIBOMUSTIN [Suspect]
     Indication: B-CELL LYMPHOMA
     Route: 042
     Dates: start: 20121126, end: 20121127
  2. MABTHERA [Suspect]
     Indication: B-CELL LYMPHOMA
     Dosage: CYCLIC
     Dates: start: 20121126, end: 20121127
  3. REVLIMID [Suspect]
     Indication: B-CELL LYMPHOMA
     Dosage: REGIMEN 1 CYCLIC
     Route: 048
     Dates: start: 20121126, end: 20121127
  4. RASBURICASE [Suspect]
     Indication: B-CELL LYMPHOMA
     Dosage: CYCLIC  REGIMEN 1
     Route: 042
     Dates: start: 20121126, end: 20121126
  5. ASPIRIN [Concomitant]
     Dates: start: 201209

REACTIONS (2)
  - Subdural haematoma [Fatal]
  - Brain stem infarction [Fatal]
